FAERS Safety Report 8481119-5 (Version None)
Quarter: 2012Q3

REPORT INFORMATION
  Report Type: 
  Country: None (occurrence: None)
  Receive Date: 20120702
  Receipt Date: 20120626
  Transmission Date: 20120928
  Serious: Yes (Other)
  Sender: FDA-Public Use
  Company Number: PHHY2012BR055611

PATIENT
  Sex: Female

DRUGS (5)
  1. ESCITALOPRAM [Concomitant]
     Indication: DEPRESSION
     Dosage: 20 MG, ONE TABLET A DAY
     Route: 048
  2. AKINETON [Concomitant]
     Indication: MUSCLE SPASMS
     Dosage: 2 MG, ONE TABLET A DAY
     Route: 048
  3. AMLODIPINE [Suspect]
     Indication: HYPERTENSION
     Dosage: 1 DF (320/5 MG), A DAY
     Route: 048
  4. CLONAZEPAM [Concomitant]
     Indication: SLEEP DISORDER
     Dosage: 2 MG, ONE TABLET A DAY
     Route: 048
  5. NEOZINE [Concomitant]
     Indication: SEDATION
     Dosage: 25 MG, ONE TABLET A DAY
     Route: 048

REACTIONS (8)
  - FALL [None]
  - FRACTURE MALUNION [None]
  - HYPERTENSION [None]
  - CONVULSION [None]
  - EPISTAXIS [None]
  - RESTLESSNESS [None]
  - HEAD INJURY [None]
  - WRIST FRACTURE [None]
